FAERS Safety Report 16031301 (Version 1)
Quarter: 2019Q1

REPORT INFORMATION
  Report Type: Spontaneous
  Country: GB (occurrence: GB)
  Receive Date: 20190304
  Receipt Date: 20190304
  Transmission Date: 20190418
  Serious: Yes (Disabling, Other)
  Sender: FDA-Public Use
  Company Number: GB-PFIZER INC-2019086885

PATIENT
  Age: 80 Year
  Sex: Female
  Weight: 80.8 kg

DRUGS (16)
  1. CODEINE [Concomitant]
     Active Substance: CODEINE
     Dosage: ONE OR TWO TO BE TAKEN UP TO EIGHT TIMES A DAY
     Dates: start: 20190129
  2. FUROSEMIDE. [Concomitant]
     Active Substance: FUROSEMIDE
     Dosage: 40 MG, 1X/DAY
     Dates: start: 20190102
  3. LAXIDO [Concomitant]
     Active Substance: POLYETHYLENE GLYCOL 3350\POTASSIUM CHLORIDE\SODIUM BICARBONATE\SODIUM CHLORIDE
     Dosage: 1 DF 1X/DAY, CAN BE INCREASED UP TO SIX SACHETS IF NEEDED, SACHETS SUGAR FREE. ORANGE.
     Route: 048
     Dates: start: 20190118
  4. PREDNISOLONE. [Concomitant]
     Active Substance: PREDNISOLONE
     Dosage: 30 MG, 1X/DAY
     Dates: start: 20181105
  5. RAMIPRIL. [Concomitant]
     Active Substance: RAMIPRIL
     Dosage: 5 MG, 1X/DAY
     Dates: start: 20190102
  6. CLOPIDOGREL [Concomitant]
     Active Substance: CLOPIDOGREL BISULFATE
     Dosage: 75 MG 1X/DAY FOR 12 MONTHS
     Dates: start: 20190102
  7. ACETYLSALICYLIC ACID [Concomitant]
     Active Substance: ASPIRIN
     Dosage: 75 MG, 1X/DAY
     Dates: start: 20190118
  8. EPLERENONE. [Suspect]
     Active Substance: EPLERENONE
     Indication: CARDIAC DISORDER
     Dosage: 25 MG
  9. LOPERAMIDE [Concomitant]
     Active Substance: LOPERAMIDE
     Dosage: 4 MG AS NEEDED
     Dates: start: 20181109
  10. ATORVASTATIN [Concomitant]
     Active Substance: ATORVASTATIN
     Dosage: 40 MG 1X/DAY, EVENING
     Dates: start: 20190102
  11. HIPREX [Concomitant]
     Active Substance: METHENAMINE HIPPURATE
     Dosage: 2 G, 1X/DAY
     Dates: start: 20181108
  12. OMEPRAZOLE. [Concomitant]
     Active Substance: OMEPRAZOLE
     Dosage: 20 MG, 1X/DAY
     Dates: start: 20181227
  13. PARACETAMOL [Concomitant]
     Active Substance: ACETAMINOPHEN
     Dosage: 1 G FOUR TIMES DAILY AS NEEDED
     Dates: start: 20190109
  14. ENTOCORT [Concomitant]
     Active Substance: BUDESONIDE
     Dosage: 9 MG, 1X/DAY
     Dates: start: 20181130
  15. RANITIDINE. [Concomitant]
     Active Substance: RANITIDINE
     Dosage: 300 MG, 1X/DAY
     Dates: start: 20181217
  16. BETMIGA [Concomitant]
     Active Substance: MIRABEGRON
     Dosage: 50 MG, 1X/DAY
     Dates: start: 20190109

REACTIONS (4)
  - Anaemia [Recovered/Resolved]
  - Diarrhoea [Recovered/Resolved]
  - Colitis [Recovered/Resolved]
  - Abnormal loss of weight [Recovered/Resolved]

NARRATIVE: CASE EVENT DATE: 20181102
